FAERS Safety Report 16029851 (Version 1)
Quarter: 2019Q1

REPORT INFORMATION
  Report Type: Spontaneous
  Country: US (occurrence: US)
  Receive Date: 20190205
  Receipt Date: 20190205
  Transmission Date: 20190418
  Serious: No
  Sender: FDA-Public Use
  Company Number: None

PATIENT
  Age: 48 Year
  Sex: Female

DRUGS (1)
  1. TACROLIMUS CAP 0.5MG [Suspect]
     Active Substance: TACROLIMUS
     Dates: start: 20180610

REACTIONS (5)
  - Affective disorder [None]
  - Depression [None]
  - Headache [None]
  - Fatigue [None]
  - Dry mouth [None]

NARRATIVE: CASE EVENT DATE: 20190205
